FAERS Safety Report 7046452-2 (Version None)
Quarter: 2010Q4

REPORT INFORMATION
  Report Type: 
  Country: None (occurrence: None)
  Receive Date: 20101014
  Receipt Date: 20101004
  Transmission Date: 20110411
  Serious: Yes (Other)
  Sender: FDA-Public Use
  Company Number: JP-PFIZER INC-2010125594

PATIENT
  Age: 87 Year
  Sex: Female

DRUGS (3)
  1. CELECOX [Suspect]
     Indication: BACK PAIN
     Dosage: 100 MG, 2X/DAY
     Route: 048
     Dates: start: 20100907, end: 20100918
  2. CELECOX [Suspect]
     Dosage: 100 MG, 2X/DAY
     Route: 048
     Dates: start: 20100925, end: 20100927
  3. VOLTAREN [Concomitant]
     Indication: BACK PAIN
     Dosage: UNK

REACTIONS (1)
  - DRUG ERUPTION [None]
